FAERS Safety Report 7723242-6 (Version None)
Quarter: 2011Q3

REPORT INFORMATION
  Report Type: 
  Country: None (occurrence: None)
  Receive Date: 20110901
  Receipt Date: 20110830
  Transmission Date: 20111222
  Serious: Yes (Hospitalization)
  Sender: FDA-Public Use
  Company Number: DK-ABBOTT-11P-044-0734619-00

PATIENT
  Sex: Female

DRUGS (2)
  1. METHOTREXATE UNKNOWN MAH [Concomitant]
     Indication: PRODUCT USED FOR UNKNOWN INDICATION
     Dates: start: 20100202, end: 20110210
  2. HUMIRA [Suspect]
     Indication: RHEUMATOID ARTHRITIS
     Dates: start: 20100826

REACTIONS (2)
  - ARTHRALGIA [None]
  - PYREXIA [None]
